FAERS Safety Report 4898085-1 (Version None)
Quarter: 2006Q1

REPORT INFORMATION
  Report Type: 
  Country: None (occurrence: None)
  Receive Date: 20060201
  Receipt Date: 20060123
  Transmission Date: 20060701
  Serious: Yes (Other)
  Sender: FDA-Public Use
  Company Number: PHBS2006ES01221

PATIENT
  Age: 53 Year
  Sex: Female

DRUGS (1)
  1. ZOMETA [Suspect]
     Indication: BONE NEOPLASM
     Dosage: 4 MG, QMO
     Route: 042
     Dates: start: 20020405, end: 20040611

REACTIONS (1)
  - OSTEONECROSIS [None]
